FAERS Safety Report 6408176-1 (Version None)
Quarter: 2009Q4

REPORT INFORMATION
  Report Type: 
  Country: None (occurrence: None)
  Receive Date: 20091019
  Receipt Date: 20091005
  Transmission Date: 20100525
  Serious: Yes (Death, Hospitalization)
  Sender: FDA-Public Use
  Company Number: 2009AC000105

PATIENT
  Age: 49 Year
  Sex: Male

DRUGS (14)
  1. DIGOXIN [Suspect]
     Dosage: 0.125 MG; QD; PO
     Route: 048
  2. ALDACTONE [Concomitant]
  3. LASIX [Concomitant]
  4. TOPROL-XL [Concomitant]
  5. NITROGLYCERIN [Concomitant]
  6. PRAVACHOL [Concomitant]
  7. GLUCOTROL [Concomitant]
  8. GLUCOPHAGE [Concomitant]
  9. NEXIUM [Concomitant]
  10. NIASPAN [Concomitant]
  11. LEVAQUIN [Concomitant]
  12. DARVOCET [Concomitant]
  13. ZESTRIL [Concomitant]
  14. COUMADIN [Concomitant]

REACTIONS (5)
  - ACUTE MYOCARDIAL INFARCTION [None]
  - ATRIAL FIBRILLATION [None]
  - CARDIAC FAILURE [None]
  - DEVICE RELATED INFECTION [None]
  - FLUID OVERLOAD [None]
